FAERS Safety Report 11094173 (Version 1)
Quarter: 2015Q2

REPORT INFORMATION
  Report Type: Spontaneous
  Country: DE (occurrence: DE)
  Receive Date: 20150506
  Receipt Date: 20150506
  Transmission Date: 20150821
  Serious: Yes (Hospitalization, Other)
  Sender: FDA-Public Use
  Company Number: DE-GLAXOSMITHKLINE-DE2015GSK060931

PATIENT
  Age: 55 Year
  Sex: Female

DRUGS (4)
  1. RITUXIMAB [Concomitant]
     Active Substance: RITUXIMAB
     Dosage: 375 MG/M2, SINGLE
     Dates: start: 20101214
  2. ZANAMIVIR [Suspect]
     Active Substance: ZANAMIVIR
     Indication: INFLUENZA
     Dosage: 10 MG, BID
     Route: 055
     Dates: start: 20110217, end: 201104
  3. PREDNISOLONE. [Concomitant]
     Active Substance: PREDNISOLONE
  4. OSELTAMIVIR [Suspect]
     Active Substance: OSELTAMIVIR
     Indication: INFLUENZA
     Dosage: 75 MG, QD
     Dates: start: 20110202, end: 20110302

REACTIONS (4)
  - Dyspnoea [Unknown]
  - Condition aggravated [Unknown]
  - Drug resistance [Unknown]
  - Pneumonia [Recovering/Resolving]

NARRATIVE: CASE EVENT DATE: 20110222
